FAERS Safety Report 7357638-1 (Version None)
Quarter: 2011Q1

REPORT INFORMATION
  Report Type: 
  Country: None (occurrence: None)
  Receive Date: 20110317
  Receipt Date: 20110309
  Transmission Date: 20110831
  Serious: Yes (Death)
  Sender: FDA-Public Use
  Company Number: US-ELI_LILLY_AND_COMPANY-US201103003249

PATIENT
  Sex: Male

DRUGS (1)
  1. ALIMTA [Suspect]
     Dates: end: 20100601

REACTIONS (1)
  - DEATH [None]
